FAERS Safety Report 19502620 (Version 1)
Quarter: 2021Q3

REPORT INFORMATION
  Report Type: Spontaneous
  Country: US (occurrence: US)
  Receive Date: 20210707
  Receipt Date: 20210707
  Transmission Date: 20211014
  Serious: No
  Sender: FDA-Public Use
  Company Number: NVSC2021US147592

PATIENT
  Sex: Female

DRUGS (3)
  1. LETROZOLE. [Suspect]
     Active Substance: LETROZOLE
     Indication: BREAST CANCER METASTATIC
     Dosage: 125 MG
     Route: 065
     Dates: start: 202007
  2. IBRANCE [Suspect]
     Active Substance: PALBOCICLIB
     Indication: BREAST CANCER METASTATIC
     Dosage: UNK
     Route: 065
     Dates: start: 202007
  3. LETROZOLE. [Suspect]
     Active Substance: LETROZOLE
     Dosage: 100 MG
     Route: 065

REACTIONS (4)
  - Somnolence [Unknown]
  - Fatigue [Unknown]
  - Lacrimation increased [Unknown]
  - Pain [Unknown]
